FAERS Safety Report 9573294 (Version 2)
Quarter: 2013Q4

REPORT INFORMATION
  Report Type: Spontaneous
  Country: JP (occurrence: JP)
  Receive Date: 20131001
  Receipt Date: 20131008
  Transmission Date: 20140711
  Serious: Yes (Other)
  Sender: FDA-Public Use
  Company Number: JP-BAXTER-2013BAX037965

PATIENT
  Age: 72 Year
  Sex: Male

DRUGS (1)
  1. KIOVIG SOLUTION FOR INFUSION 10% [Suspect]
     Indication: CREUTZFELDT-JAKOB DISEASE
     Route: 042

REACTIONS (1)
  - Drug ineffective [Not Recovered/Not Resolved]
